FAERS Safety Report 5194716-X (Version None)
Quarter: 2006Q4

REPORT INFORMATION
  Report Type: 
  Country: None (occurrence: None)
  Receive Date: 20061229
  Receipt Date: 20061209
  Transmission Date: 20070319
  Serious: Yes (Other)
  Sender: FDA-Public Use
  Company Number: PHBS2006BR19376

PATIENT
  Age: 12 Year
  Sex: Female

DRUGS (4)
  1. EXJADE [Suspect]
     Indication: THALASSAEMIA
     Dosage: 30 MG/KG/D
     Route: 048
     Dates: start: 20060926
  2. HYDROXYUREA [Concomitant]
     Dosage: 1200 MG/DAY
  3. ENDOFOLIN [Concomitant]
  4. HYDROXYZINE [Concomitant]

REACTIONS (5)
  - ALANINE AMINOTRANSFERASE INCREASED [None]
  - ASPARTATE AMINOTRANSFERASE INCREASED [None]
  - FIBROSIS [None]
  - PROTHROMBIN LEVEL ABNORMAL [None]
  - SERUM FERRITIN INCREASED [None]
